FAERS Safety Report 13044291 (Version 1)
Quarter: 2016Q4

REPORT INFORMATION
  Report Type: Spontaneous
  Country: US (occurrence: US)
  Receive Date: 20161219
  Receipt Date: 20161219
  Transmission Date: 20170207
  Serious: Yes (Hospitalization, Disabling)
  Sender: FDA-Public Use
  Company Number: None

PATIENT
  Age: 57 Year
  Sex: Male
  Weight: 83.25 kg

DRUGS (3)
  1. HARVONI [Suspect]
     Active Substance: LEDIPASVIR\SOFOSBUVIR
     Indication: HEPATITIS C
     Dosage: ?          QUANTITY:1 TABLET(S);?
     Route: 048
  2. DOXEPIN [Concomitant]
     Active Substance: DOXEPIN
  3. SUBOXONE [Concomitant]
     Active Substance: BUPRENORPHINE HYDROCHLORIDE\NALOXONE HYDROCHLORIDE

REACTIONS (39)
  - Peripheral swelling [None]
  - Rheumatoid factor positive [None]
  - Abdominal discomfort [None]
  - Diarrhoea [None]
  - Bedridden [None]
  - Headache [None]
  - Depression [None]
  - Quality of life decreased [None]
  - Insomnia [None]
  - Abasia [None]
  - Sinusitis [None]
  - Bone pain [None]
  - Hepatic pain [None]
  - Hallucination, visual [None]
  - Pain in extremity [None]
  - Feeling abnormal [None]
  - Neuralgia [None]
  - Emotional disorder [None]
  - Musculoskeletal pain [None]
  - Amnesia [None]
  - Vision blurred [None]
  - Joint swelling [None]
  - Facial pain [None]
  - Back pain [None]
  - Mental disorder [None]
  - Skin lesion [None]
  - Hypovitaminosis [None]
  - Hypersensitivity [None]
  - Neck pain [None]
  - Photopsia [None]
  - Dizziness [None]
  - Fatigue [None]
  - Sinus disorder [None]
  - Cyst [None]
  - Muscle spasms [None]
  - Blood potassium abnormal [None]
  - Abdominal distension [None]
  - Renal pain [None]
  - Weight increased [None]

NARRATIVE: CASE EVENT DATE: 20161219
